FAERS Safety Report 21210048 (Version 2)
Quarter: 2022Q3

REPORT INFORMATION
  Report Type: Spontaneous
  Country: US (occurrence: US)
  Receive Date: 20220814
  Receipt Date: 20220917
  Transmission Date: 20221027
  Serious: Yes (Hospitalization, Other)
  Sender: FDA-Public Use
  Company Number: US-drreddys-SPO/USA/22/0153312

PATIENT
  Age: 14 Year
  Sex: Male

DRUGS (5)
  1. OLANZAPINE [Suspect]
     Active Substance: OLANZAPINE
     Indication: Substance-induced psychotic disorder
     Dosage: STARTED AND TITRATED
  2. OLANZAPINE [Suspect]
     Active Substance: OLANZAPINE
  3. HYDROCORTISONE [Concomitant]
     Active Substance: HYDROCORTISONE
     Indication: T-cell type acute leukaemia
     Route: 037
  4. CYTARABINE [Concomitant]
     Active Substance: CYTARABINE
     Indication: T-cell type acute leukaemia
     Route: 037
  5. METHOTREXATE [Concomitant]
     Active Substance: METHOTREXATE
     Indication: T-cell type acute leukaemia
     Route: 037

REACTIONS (1)
  - Catatonia [Recovering/Resolving]
